FAERS Safety Report 6445126-6 (Version None)
Quarter: 2009Q4

REPORT INFORMATION
  Report Type: 
  Country: None (occurrence: None)
  Receive Date: 20091116
  Receipt Date: 20091116
  Transmission Date: 20100525
  Serious: No
  Sender: FDA-Public Use
  Company Number: None

PATIENT
  Age: 66 Year
  Sex: Male

DRUGS (1)
  1. DIPHENHYDRAMINE/PSEUDOEPHEDRINE [Suspect]
     Dosage: 1 TAB BID PO
     Route: 048
     Dates: start: 20091109, end: 20091110

REACTIONS (1)
  - RASH [None]
